FAERS Safety Report 8793423 (Version 1)
Quarter: 2012Q4

REPORT INFORMATION
  Report Type: 
  Country: CN (occurrence: CN)
  Receive Date: 20120918
  Receipt Date: 20120918
  Transmission Date: 20130627
  Serious: Yes (Other)
  Sender: FDA-Public Use
  Company Number: PHHY2012CN080486

PATIENT
  Age: 51 Year
  Sex: Male

DRUGS (1)
  1. DIOVAN [Suspect]
     Indication: HYPERTENSION
     Dosage: 1 DF, daily (80 mg)
     Route: 048

REACTIONS (6)
  - Coma [Unknown]
  - Somnolence [Unknown]
  - Blood pressure diastolic increased [Unknown]
  - Dizziness [Unknown]
  - Arthralgia [Unknown]
  - Drug ineffective [Unknown]
